FAERS Safety Report 25902006 (Version 1)
Quarter: 2025Q4

REPORT INFORMATION
  Report Type: Spontaneous
  Country: US (occurrence: US)
  Receive Date: 20251009
  Receipt Date: 20251009
  Transmission Date: 20260118
  Serious: No
  Sender: Thea Pharma
  Company Number: US-THEA-2023001850

PATIENT
  Sex: Female

DRUGS (2)
  1. AZASITE [Suspect]
     Active Substance: AZITHROMYCIN MONOHYDRATE
     Indication: Dry eye
     Dosage: EACH EYE
     Route: 047
     Dates: start: 20230915, end: 20230916
  2. AZASITE [Suspect]
     Active Substance: AZITHROMYCIN MONOHYDRATE
     Indication: Dry eye
     Dosage: EACH EYE
     Route: 047
     Dates: start: 20230917

REACTIONS (2)
  - Product use issue [Unknown]
  - Product use in unapproved indication [Unknown]

NARRATIVE: CASE EVENT DATE: 20230901
